FAERS Safety Report 13373100 (Version 1)
Quarter: 2017Q1

REPORT INFORMATION
  Report Type: Spontaneous
  Country: US (occurrence: US)
  Receive Date: 20170325
  Receipt Date: 20170325
  Transmission Date: 20170429
  Serious: Yes (Hospitalization)
  Sender: FDA-Public Use
  Company Number: None

PATIENT
  Age: 90 Year
  Sex: Male
  Weight: 90 kg

DRUGS (12)
  1. GEMFIBROZIL (LOPID) [Concomitant]
  2. MIRALAX [Concomitant]
     Active Substance: POLYETHYLENE GLYCOL 3350
  3. MULTIPLE VITAMINS [Concomitant]
     Active Substance: VITAMINS
  4. PROZAC [Concomitant]
     Active Substance: FLUOXETINE HYDROCHLORIDE
  5. PROTONIX [Concomitant]
     Active Substance: PANTOPRAZOLE SODIUM
  6. LIPITOR [Concomitant]
     Active Substance: ATORVASTATIN CALCIUM
  7. APIXABAN [Suspect]
     Active Substance: APIXABAN
     Indication: ATRIAL FIBRILLATION
     Route: 048
  8. NEURONTIN [Suspect]
     Active Substance: GABAPENTIN
  9. HYDROCODONE-ACETAMINOPHEN (NORCO) [Concomitant]
  10. ASPIRIN. [Suspect]
     Active Substance: ASPIRIN
     Indication: ATRIAL FIBRILLATION
     Route: 048
  11. VALIUM [Concomitant]
     Active Substance: DIAZEPAM
  12. PLAVIX [Concomitant]
     Active Substance: CLOPIDOGREL BISULFATE

REACTIONS (5)
  - Haematemesis [None]
  - Drug ineffective [None]
  - Eye haemorrhage [None]
  - Pharyngeal haemorrhage [None]
  - Epistaxis [None]

NARRATIVE: CASE EVENT DATE: 20170215
